FAERS Safety Report 7183818-4 (Version None)
Quarter: 2010Q4

REPORT INFORMATION
  Report Type: 
  Country: None (occurrence: None)
  Receive Date: 20101222
  Receipt Date: 20101220
  Transmission Date: 20110411
  Serious: Yes (Other)
  Sender: FDA-Public Use
  Company Number: US-AMGEN-USASP2010006671

PATIENT

DRUGS (7)
  1. PROLIA [Suspect]
     Indication: OSTEOPOROSIS POSTMENOPAUSAL
     Dosage: 60 MG, UNK
     Route: 058
     Dates: start: 20101116
  2. DILANTIN [Concomitant]
  3. VYTORIN [Concomitant]
  4. GEMFIBROZIL [Concomitant]
  5. LEVOTHYROXINE SODIUM [Concomitant]
  6. TYLENOL (CAPLET) [Concomitant]
  7. CYCLOBENZAPRINE [Concomitant]

REACTIONS (5)
  - APHAGIA [None]
  - FEELING ABNORMAL [None]
  - NECK PAIN [None]
  - PAIN IN JAW [None]
  - TOOTH DISORDER [None]
